FAERS Safety Report 6114223-7 (Version None)
Quarter: 2009Q1

REPORT INFORMATION
  Report Type: 
  Country: None (occurrence: None)
  Receive Date: 20090312
  Receipt Date: 20080922
  Transmission Date: 20090719
  Serious: No
  Sender: FDA-Public Use
  Company Number: US-ABBOTT-08P-163-0478510-00

PATIENT
  Sex: Female
  Weight: 50.848 kg

DRUGS (3)
  1. DEPAKOTE [Suspect]
     Indication: CONVULSION
     Dosage: 1500MG DAILY
     Route: 048
     Dates: start: 20020101, end: 20040101
  2. DEPAKOTE [Suspect]
     Dosage: 1500 MG DAILY
     Route: 048
     Dates: start: 20070601
  3. VITAMINS [Concomitant]
     Indication: VITAMIN SUPPLEMENTATION
     Dosage: DAILY
     Route: 048

REACTIONS (4)
  - ALOPECIA [None]
  - BALANCE DISORDER [None]
  - MIGRAINE [None]
  - TREMOR [None]
